FAERS Safety Report 9613950 (Version 1)
Quarter: 2013Q4

REPORT INFORMATION
  Report Type: Spontaneous
  Country: US (occurrence: US)
  Receive Date: 20131011
  Receipt Date: 20131011
  Transmission Date: 20140711
  Serious: Yes (Other)
  Sender: FDA-Public Use
  Company Number: US-AMGEN-USASP2013070760

PATIENT
  Age: 75 Year
  Sex: Female
  Weight: 81.63 kg

DRUGS (18)
  1. PROCRIT [Suspect]
     Indication: ANAEMIA
     Dosage: 15000 UNIT/ML, Q2WK
     Route: 058
  2. TOPROL [Concomitant]
     Indication: BLOOD PRESSURE ABNORMAL
     Dosage: 150 MG, QD
     Route: 048
  3. PREMARIN [Concomitant]
     Indication: HORMONE REPLACEMENT THERAPY
     Dosage: 0.625 MG, QD
     Route: 048
  4. PLAVIX [Concomitant]
     Dosage: 75 MG, QD
     Route: 048
     Dates: start: 2003
  5. JANUVIA [Concomitant]
     Indication: DIABETES MELLITUS
     Dosage: 50 MG, QD
     Route: 048
  6. PRAVASTATIN [Concomitant]
     Indication: BLOOD CHOLESTEROL
     Dosage: 40 MG, QD
     Route: 048
  7. CELEBREX [Concomitant]
     Indication: ARTHRITIS
     Dosage: 200 MG, QD
     Route: 048
  8. LOTREL [Concomitant]
     Indication: HYPERTENSION
     Dosage: 10MG/40MG , QD
     Route: 048
  9. ASPIRIN [Concomitant]
     Indication: CARDIAC DISORDER
     Dosage: 81 MG, QD
     Route: 048
  10. LANTUS [Concomitant]
     Indication: DIABETES MELLITUS
     Dosage: 90 UNIT, QD
     Route: 058
  11. APIDRA [Concomitant]
     Indication: DIABETES MELLITUS
     Dosage: 12 UNIT, DAILY IN AM
  12. APIDRA [Concomitant]
     Dosage: 10 UNIT, DAILY BEFORE MEALS
  13. ZOLPIDEM [Concomitant]
     Indication: SLEEP DISORDER
     Dosage: 10 MG, QHS
     Route: 048
  14. ESCITALOPRAM [Concomitant]
     Indication: DEPRESSION
     Dosage: 10 MG, QD
     Route: 048
  15. DIAZEPAM [Concomitant]
     Dosage: 5 MG, QD
     Route: 048
  16. FUROSEMIDE [Concomitant]
     Indication: FLUID RETENTION
     Dosage: 20 MG, QD
     Route: 048
  17. DOXAZOSIN MESYLATE [Concomitant]
     Dosage: 4 MG, QD
  18. PANTOPRAZOLE SODIUM [Concomitant]
     Indication: GASTROOESOPHAGEAL REFLUX DISEASE
     Dosage: 40 MG, QD

REACTIONS (1)
  - Breast cancer [Recovered/Resolved]
